FAERS Safety Report 9287151 (Version 1)
Quarter: 2013Q2

REPORT INFORMATION
  Report Type: Spontaneous
  Country: US (occurrence: US)
  Receive Date: 20130513
  Receipt Date: 20130513
  Transmission Date: 20140414
  Serious: No
  Sender: FDA-Public Use
  Company Number: US-009507513-1305USA003315

PATIENT
  Age: 70 Year
  Sex: Female

DRUGS (12)
  1. ASMANEX TWISTHALER [Suspect]
     Dosage: 220 MICROGRAM, QD
     Route: 055
     Dates: start: 2012
  2. LIPITOR [Concomitant]
  3. DICYCLOMINE HYDROCHLORIDE [Concomitant]
  4. DIOVAN [Concomitant]
  5. PROAIR (ALBUTEROL SULFATE) [Concomitant]
  6. FENOFIBRATE [Concomitant]
  7. FLUTICASONE [Concomitant]
  8. GABAPENTIN [Concomitant]
  9. LEVOTHYROXINE SODIUM [Concomitant]
  10. COZAAR [Concomitant]
     Route: 048
  11. METOPROLOL [Concomitant]
  12. TRAMADOL HYDROCHLORIDE [Concomitant]

REACTIONS (2)
  - Drug ineffective [Unknown]
  - Off label use [Unknown]
